FAERS Safety Report 5377448-4 (Version None)
Quarter: 2007Q3

REPORT INFORMATION
  Report Type: 
  Country: None (occurrence: None)
  Receive Date: 20070703
  Receipt Date: 20070622
  Transmission Date: 20080115
  Serious: Yes (Disabling, Other)
  Sender: FDA-Public Use
  Company Number: US-JNJFOC-20070405118

PATIENT
  Sex: Female
  Weight: 75.75 kg

DRUGS (6)
  1. DURAGESIC-100 [Suspect]
     Indication: RESTLESS LEGS SYNDROME
     Route: 062
  2. DURAGESIC-100 [Suspect]
     Indication: PAIN
     Route: 062
  3. ACTOS [Concomitant]
     Indication: DIABETES MELLITUS
     Route: 048
  4. LIPITOR [Concomitant]
     Indication: BLOOD CHOLESTEROL INCREASED
     Route: 048
  5. CALAN [Concomitant]
     Indication: HYPERTENSION
     Route: 048
  6. LORTAB [Concomitant]
     Indication: BREAKTHROUGH PAIN
     Route: 048

REACTIONS (6)
  - BACK PAIN [None]
  - FATIGUE [None]
  - INSOMNIA [None]
  - PAIN IN EXTREMITY [None]
  - POOR QUALITY SLEEP [None]
  - RESTLESS LEGS SYNDROME [None]
